FAERS Safety Report 4709414-3 (Version None)
Quarter: 2005Q3

REPORT INFORMATION
  Report Type: 
  Country: None (occurrence: None)
  Receive Date: 20050705
  Receipt Date: 20050620
  Transmission Date: 20060218
  Serious: Yes (Death)
  Sender: FDA-Public Use
  Company Number: DSA_70671_2005

PATIENT
  Age: 51 Year
  Sex: Female

DRUGS (2)
  1. ORAMORPH SR [Suspect]
  2. PAROXETINE HCL [Suspect]
     Dosage: DF

REACTIONS (2)
  - FEELING ABNORMAL [None]
  - MULTIPLE DRUG OVERDOSE [None]
